FAERS Safety Report 6804835-7 (Version None)
Quarter: 2010Q2

REPORT INFORMATION
  Report Type: 
  Country: None (occurrence: None)
  Receive Date: 20100628
  Receipt Date: 20070620
  Transmission Date: 20101027
  Serious: No
  Sender: FDA-Public Use
  Company Number: US-PFIZER INC-2007051961

PATIENT
  Sex: Female

DRUGS (1)
  1. CADUET [Suspect]

REACTIONS (4)
  - DIZZINESS [None]
  - FACIAL PAIN [None]
  - HEADACHE [None]
  - VERTIGO [None]
